FAERS Safety Report 7553679-X (Version None)
Quarter: 2011Q2

REPORT INFORMATION
  Report Type: 
  Country: None (occurrence: None)
  Receive Date: 20110614
  Receipt Date: 20110614
  Transmission Date: 20111010
  Serious: No
  Sender: FDA-Public Use
  Company Number: None

PATIENT
  Sex: Female
  Weight: 72.5755 kg

DRUGS (1)
  1. METRONIDAZOLE [Suspect]
     Indication: VAGINAL INFECTION
     Dosage: ONE APPLICATOR 5 DAYS VAG
     Route: 067
     Dates: start: 20110606, end: 20110609

REACTIONS (4)
  - DIARRHOEA [None]
  - PRURITUS [None]
  - VULVOVAGINAL PRURITUS [None]
  - ANORECTAL DISORDER [None]
